FAERS Safety Report 13172417 (Version 2)
Quarter: 2017Q1

REPORT INFORMATION
  Report Type: Spontaneous
  Country: US (occurrence: US)
  Receive Date: 20170201
  Receipt Date: 20170227
  Transmission Date: 20170428
  Serious: No
  Sender: FDA-Public Use
  Company Number: US-ASTRAZENECA-2017SE11282

PATIENT
  Age: 29856 Day
  Sex: Male
  Weight: 90.7 kg

DRUGS (2)
  1. BYDUREON [Suspect]
     Active Substance: EXENATIDE
     Indication: TYPE 2 DIABETES MELLITUS
     Route: 058
     Dates: start: 2014
  2. MECLAZINE [Concomitant]
     Indication: DIZZINESS

REACTIONS (8)
  - Circumstance or information capable of leading to medication error [Unknown]
  - Blood pressure increased [Unknown]
  - Device issue [Unknown]
  - Cardiac disorder [Unknown]
  - Dizziness [Unknown]
  - Intentional product use issue [Unknown]
  - Injection site haemorrhage [Recovered/Resolved]
  - Drug dose omission [Unknown]

NARRATIVE: CASE EVENT DATE: 20170121
